FAERS Safety Report 15936860 (Version 1)
Quarter: 2019Q1

REPORT INFORMATION
  Report Type: Spontaneous
  Country: US (occurrence: US)
  Receive Date: 20190208
  Receipt Date: 20190208
  Transmission Date: 20190417
  Serious: Yes (Hospitalization)
  Sender: FDA-Public Use
  Company Number: None

PATIENT
  Age: 52 Year
  Sex: Male

DRUGS (9)
  1. HUMIRA [Suspect]
     Active Substance: ADALIMUMAB
     Indication: PRODUCT USED FOR UNKNOWN INDICATION
     Dosage: ?          OTHER FREQUENCY:QOW;?
     Route: 058
     Dates: start: 20171111
  2. TRAMADOL. [Concomitant]
     Active Substance: TRAMADOL
  3. BUDESONIDE. [Concomitant]
     Active Substance: BUDESONIDE
  4. TESTOSTERONE. [Concomitant]
     Active Substance: TESTOSTERONE
  5. HYDROCHLOROT [Concomitant]
     Active Substance: HYDROCHLOROTHIAZIDE
  6. TADALAFIL. [Concomitant]
     Active Substance: TADALAFIL
  7. BACLOFEN. [Concomitant]
     Active Substance: BACLOFEN
  8. CYCLOBENZAPR [Concomitant]
     Active Substance: CYCLOBENZAPRINE
  9. ESOMEPRA MAG [Concomitant]

REACTIONS (1)
  - Lower gastrointestinal haemorrhage [None]

NARRATIVE: CASE EVENT DATE: 20190131
